FAERS Safety Report 8214061-5 (Version None)
Quarter: 2012Q1

REPORT INFORMATION
  Report Type: 
  Country: None (occurrence: None)
  Receive Date: 20120314
  Receipt Date: 20120314
  Transmission Date: 20120608
  Serious: Yes (Hospitalization)
  Sender: FDA-Public Use
  Company Number: None

PATIENT
  Age: 57 Year
  Sex: Female
  Weight: 74.7 kg

DRUGS (7)
  1. DAPTOMYCIN [Suspect]
     Indication: DEVICE RELATED INFECTION
     Dosage: 560 MG Q24HR IVPB RECENT
     Route: 042
  2. CRESTOR [Concomitant]
  3. LOSARTAN POTASSIUM [Concomitant]
  4. ASPIRIN [Concomitant]
  5. PRILOSEC [Concomitant]
  6. EFFEXOR [Concomitant]
  7. TOPAMAX [Concomitant]

REACTIONS (3)
  - DRUG HYPERSENSITIVITY [None]
  - ACUTE RESPIRATORY DISTRESS SYNDROME [None]
  - EOSINOPHILIC PNEUMONIA [None]
